FAERS Safety Report 14501514 (Version 1)
Quarter: 2018Q1

REPORT INFORMATION
  Report Type: Spontaneous
  Country: US (occurrence: US)
  Receive Date: 20180207
  Receipt Date: 20180207
  Transmission Date: 20180509
  Serious: No
  Sender: FDA-Public Use
  Company Number: US-AMGEN-USASP2017192150

PATIENT
  Age: 62 Year

DRUGS (2)
  1. NEULASTA [Suspect]
     Active Substance: PEGFILGRASTIM
     Indication: PRODUCT USED FOR UNKNOWN INDICATION
     Dosage: 6 MG, UNK
     Route: 065
     Dates: end: 201708
  2. NEULASTA [Suspect]
     Active Substance: PEGFILGRASTIM
     Dosage: 3 MG, UNK
     Route: 065
     Dates: start: 201708

REACTIONS (1)
  - Bone pain [Unknown]
